FAERS Safety Report 9729632 (Version 3)
Quarter: 2014Q3

REPORT INFORMATION
  Report Type: Spontaneous
  Country: US (occurrence: US)
  Receive Date: 20131204
  Receipt Date: 20140701
  Transmission Date: 20150326
  Serious: Yes (Hospitalization, Other)
  Sender: FDA-Public Use
  Company Number: US-ASTRAZENECA-2013SE87256

PATIENT
  Age: 31716 Day
  Sex: Female

DRUGS (6)
  1. ASA [Interacting]
     Active Substance: ASPIRIN
     Route: 065
  2. ACCUPRIL [Interacting]
     Active Substance: QUINAPRIL HYDROCHLORIDE
     Dosage: 20+5ML
     Route: 065
  3. GLUCOPHAGE [Interacting]
     Active Substance: METFORMIN HYDROCHLORIDE
     Route: 065
  4. TOPROL XL [Suspect]
     Active Substance: METOPROLOL SUCCINATE
     Indication: HYPERTENSION
     Route: 048
  5. METOPROLOL TARTRATE. [Interacting]
     Active Substance: METOPROLOL TARTRATE
     Route: 048
  6. PROCARDIA XL [Interacting]
     Active Substance: NIFEDIPINE
     Route: 065

REACTIONS (9)
  - Conduction disorder [Unknown]
  - Malaise [Unknown]
  - Blood pressure abnormal [Recovered/Resolved]
  - Sinus bradycardia [Recovering/Resolving]
  - Colitis ischaemic [Recovering/Resolving]
  - Blood glucose increased [Unknown]
  - Atrioventricular dissociation [Unknown]
  - Heart rate decreased [Unknown]
  - Drug interaction [Unknown]

NARRATIVE: CASE EVENT DATE: 20130911
